FAERS Safety Report 24924859 (Version 1)
Quarter: 2025Q1

REPORT INFORMATION
  Report Type: Report from Study
  Country: US (occurrence: US)
  Receive Date: 20250204
  Receipt Date: 20250204
  Transmission Date: 20250409
  Serious: No
  Sender: EXELIXIS
  Company Number: US-EXELIXIS-CABO-24076079

PATIENT
  Sex: Male
  Weight: 79.365 kg

DRUGS (11)
  1. CABOMETYX [Suspect]
     Active Substance: CABOZANTINIB S-MALATE
     Indication: Renal cell carcinoma
     Dosage: 40 MG, QD
     Route: 048
  2. TIZANIDINE HYDROCHLORIDE [Concomitant]
     Active Substance: TIZANIDINE HYDROCHLORIDE
  3. EVEROLIMUS [Concomitant]
     Active Substance: EVEROLIMUS
  4. LENVIMA [Concomitant]
     Active Substance: LENVATINIB
  5. TYLENOL [Concomitant]
     Active Substance: ACETAMINOPHEN
  6. COMPAZINE [Concomitant]
     Active Substance: PROCHLORPERAZINE MALEATE
  7. SENNA [Concomitant]
     Active Substance: SENNOSIDES
  8. ONDANSETRON HYDROCHLORIDE [Concomitant]
     Active Substance: ONDANSETRON HYDROCHLORIDE
  9. POLYETHYLENE GLYCOL [Concomitant]
     Active Substance: POLYETHYLENE GLYCOL
  10. TRAZODONE HCL [Concomitant]
     Active Substance: TRAZODONE HYDROCHLORIDE
  11. ELIQUIS [Concomitant]
     Active Substance: APIXABAN

REACTIONS (1)
  - Pain [Unknown]
